FAERS Safety Report 11607364 (Version 3)
Quarter: 2015Q4

REPORT INFORMATION
  Report Type: Spontaneous
  Country: JP (occurrence: JP)
  Receive Date: 20151007
  Receipt Date: 20151104
  Transmission Date: 20160304
  Serious: Yes (Other)
  Sender: FDA-Public Use
  Company Number: JP-UCBSA-2015030984

PATIENT
  Age: 8 Month
  Sex: Female

DRUGS (5)
  1. KEPPRA [Suspect]
     Active Substance: LEVETIRACETAM
     Dosage: 105 MG, 2X/DAY (BID)
     Route: 048
     Dates: start: 20150710, end: 20150712
  2. PHENOBARBITAL. [Suspect]
     Active Substance: PHENOBARBITAL
     Dosage: DAILY DOSE: 60 MG
     Route: 048
     Dates: start: 20150406, end: 20150716
  3. KEPPRA [Suspect]
     Active Substance: LEVETIRACETAM
     Indication: INFANTILE SPASMS
     Dosage: 35 MG, 2X/DAY (BID)
     Route: 048
     Dates: start: 20150703, end: 20150706
  4. KEPPRA [Suspect]
     Active Substance: LEVETIRACETAM
     Indication: OFF LABEL USE
     Dosage: 70 MG, 2X/DAY (BID)
     Route: 048
     Dates: start: 20150706, end: 20150710
  5. PHENOBARBITAL. [Suspect]
     Active Substance: PHENOBARBITAL
     Indication: PRODUCT USED FOR UNKNOWN INDICATION
     Dosage: DAILY DOSE: 50 MG
     Route: 048
     Dates: start: 20150327, end: 20150406

REACTIONS (4)
  - Blood pressure decreased [Recovered/Resolved]
  - Off label use [Unknown]
  - Shock [Recovered/Resolved]
  - Bradycardia [Recovered/Resolved]

NARRATIVE: CASE EVENT DATE: 20150703
